FAERS Safety Report 7497486-5 (Version None)
Quarter: 2011Q2

REPORT INFORMATION
  Report Type: 
  Country: None (occurrence: None)
  Receive Date: 20110523
  Receipt Date: 20110510
  Transmission Date: 20111010
  Serious: Yes (Hospitalization, Other)
  Sender: FDA-Public Use
  Company Number: US-ELI_LILLY_AND_COMPANY-US201001003349

PATIENT
  Sex: Female
  Weight: 40.363 kg

DRUGS (3)
  1. FORTEO [Suspect]
     Indication: OSTEOPOROSIS
     Dosage: 20 UG, DAILY (1/D)
     Dates: start: 20090806
  2. FORTEO [Suspect]
     Dosage: 20 UG, DAILY (1/D)
  3. FORTEO [Suspect]
     Dosage: 20 UG, DAILY (1/D)
     Dates: end: 20101201

REACTIONS (14)
  - BACK PAIN [None]
  - OEDEMA PERIPHERAL [None]
  - FALL [None]
  - BRADYPHRENIA [None]
  - MALAISE [None]
  - ARTHRALGIA [None]
  - PERICARDIAL EFFUSION [None]
  - DISORIENTATION [None]
  - FATIGUE [None]
  - NIGHT BLINDNESS [None]
  - FEELING ABNORMAL [None]
  - URETHRAL DISORDER [None]
  - MEMORY IMPAIRMENT [None]
  - PLEURAL EFFUSION [None]
